FAERS Safety Report 5541756-4 (Version None)
Quarter: 2007Q4

REPORT INFORMATION
  Report Type: 
  Country: None (occurrence: None)
  Receive Date: 20071210
  Receipt Date: 20071204
  Transmission Date: 20080405
  Serious: Yes (Other)
  Sender: FDA-Public Use
  Company Number: A0688239A

PATIENT
  Age: 77 Year
  Sex: Male

DRUGS (15)
  1. ADVAIR DISKUS 100/50 [Suspect]
     Indication: CHRONIC OBSTRUCTIVE PULMONARY DISEASE
     Dosage: 1PUFF TWICE PER DAY
     Route: 055
     Dates: start: 20040101
  2. AGGRENOX [Concomitant]
  3. ALBUTEROL [Concomitant]
  4. LANOXIN [Concomitant]
  5. ACIPHEX [Concomitant]
  6. SINGULAIR [Concomitant]
  7. COZAAR [Concomitant]
  8. ZOCOR [Concomitant]
  9. FLOMAX [Concomitant]
  10. SPIRIVA [Concomitant]
  11. PREDNISONE [Concomitant]
  12. AVODART [Concomitant]
  13. MUCINEX [Concomitant]
  14. TRIAMCINOLONE [Concomitant]
  15. METROGEL [Concomitant]

REACTIONS (3)
  - DRY EYE [None]
  - HEADACHE [None]
  - TRANSIENT ISCHAEMIC ATTACK [None]
